FAERS Safety Report 9843878 (Version 1)
Quarter: 2013Q4

REPORT INFORMATION
  Report Type: Spontaneous
  Country: US (occurrence: None)
  Receive Date: 20131223
  Receipt Date: 20131223
  Transmission Date: 20140711
  Serious: No
  Sender: FDA-Public Use
  Company Number: 1000048455

PATIENT
  Age: 80 Year
  Sex: Female

DRUGS (8)
  1. LINZESS (LINACLOTIDE) (290 MICROGRAM, CAPSULES) [Suspect]
     Indication: CONSTIPATION
     Dosage: 290MCG (290 MCG, 1 IN 1 D), ORAL
     Route: 048
     Dates: start: 20130828
  2. CLONIDINE (CLONIDINE) (CLONIDINE) [Concomitant]
  3. TRENTAL (PENTOXIFYLLINE) (PENTOXIFYLLINE) [Concomitant]
  4. METOPROLOL (METOPROLOL) (METOPROLOL) [Concomitant]
  5. LORAZEPAM (LORAZEPAM) (LORAZEPAM) [Concomitant]
  6. LISINOPROLOL (LISINOPRIL) (LISINOPRIL) [Concomitant]
  7. SIMVASTATIN (SIMVASTATIN) (SIMVASTATIN) [Concomitant]
  8. NORTRIPTYLINE (NORTRIPTYLINE) (NORTRIPTYLINE) [Concomitant]

REACTIONS (2)
  - Asthenia [None]
  - Somnolence [None]
